FAERS Safety Report 10752532 (Version 4)
Quarter: 2015Q2

REPORT INFORMATION
  Report Type: Report from Study
  Country: BR (occurrence: BR)
  Receive Date: 20150130
  Receipt Date: 20150513
  Transmission Date: 20150821
  Serious: Yes (Other)
  Sender: FDA-Public Use
  Company Number: PHHY2014BR042951

PATIENT
  Age: 73 Year
  Sex: Female
  Weight: 72 kg

DRUGS (11)
  1. ENALAPRIL MALEATE. [Concomitant]
     Active Substance: ENALAPRIL MALEATE
     Indication: TACHYCARDIA
     Dosage: 1 DF, QD (IN THE MORNING)
     Route: 065
  2. SANDOSTATIN LAR DEPOT [Suspect]
     Active Substance: OCTREOTIDE ACETATE
     Indication: CARCINOID SYNDROME
     Dosage: 1 DF (AMPOULE), EVERY 30 DAYS (10 MG)
     Route: 030
     Dates: start: 2011
  3. SANDOSTATIN LAR DEPOT [Suspect]
     Active Substance: OCTREOTIDE ACETATE
     Dosage: 30 MG, EVERY 28 DAYS
     Route: 065
  4. TYLENOL [Concomitant]
     Active Substance: ACETAMINOPHEN
     Indication: HEADACHE
     Route: 065
  5. ENALAPRIL MALEATE. [Concomitant]
     Active Substance: ENALAPRIL MALEATE
     Indication: BLOOD PRESSURE ABNORMAL
  6. CREON [Concomitant]
     Active Substance: PANCRELIPASE AMYLASE\PANCRELIPASE LIPASE\PANCRELIPASE PROTEASE
     Indication: PANCREATIC DISORDER
     Dosage: 25 MG, UNK
     Route: 048
  7. CREON [Concomitant]
     Active Substance: PANCRELIPASE AMYLASE\PANCRELIPASE LIPASE\PANCRELIPASE PROTEASE
     Dosage: 1 DF, QD
     Route: 048
  8. TIORFAN [Concomitant]
     Active Substance: RACECADOTRIL
     Indication: PAIN
     Route: 048
  9. SANDOSTATIN LAR DEPOT [Suspect]
     Active Substance: OCTREOTIDE ACETATE
     Dosage: 20 MG, UNK
     Route: 065
  10. SANDOSTATIN LAR DEPOT [Suspect]
     Active Substance: OCTREOTIDE ACETATE
     Dosage: 10 MG, UNK
     Route: 065
  11. ANCORON [Concomitant]
     Active Substance: AMIODARONE HYDROCHLORIDE
     Indication: TACHYCARDIA
     Dosage: 1 DF, QD
     Route: 065

REACTIONS (16)
  - Injection site pain [Recovered/Resolved]
  - Amnesia [Not Recovered/Not Resolved]
  - Crying [Unknown]
  - Weight decreased [Recovering/Resolving]
  - Nausea [Recovered/Resolved]
  - Needle issue [Unknown]
  - Injection site mass [Recovered/Resolved]
  - Asthenia [Unknown]
  - Mood altered [Unknown]
  - Injection site erythema [Recovered/Resolved]
  - Insomnia [Recovering/Resolving]
  - Tachycardia [Recovering/Resolving]
  - Confusional state [Not Recovered/Not Resolved]
  - Diarrhoea [Not Recovered/Not Resolved]
  - Injection site induration [Recovered/Resolved]
  - Injection site discolouration [Recovered/Resolved]

NARRATIVE: CASE EVENT DATE: 201211
